FAERS Safety Report 21287151 (Version 1)
Quarter: 2022Q3

REPORT INFORMATION
  Report Type: Spontaneous
  Country: US (occurrence: None)
  Receive Date: 20220902
  Receipt Date: 20220902
  Transmission Date: 20221026
  Serious: Yes (Hospitalization, Other)
  Sender: FDA-Public Use
  Company Number: None

PATIENT
  Age: 17 Year
  Sex: Female
  Weight: 96 kg

DRUGS (2)
  1. ZONISAMIDE [Suspect]
     Active Substance: ZONISAMIDE
     Indication: Juvenile myoclonic epilepsy
     Dosage: FREQUENCY : TWICE A DAY;?
     Route: 048
     Dates: start: 20220801, end: 20220830
  2. LEVETIRACETAM [Concomitant]
     Active Substance: LEVETIRACETAM

REACTIONS (13)
  - Wrong dose [None]
  - Fatigue [None]
  - Malaise [None]
  - Pyrexia [None]
  - Nausea [None]
  - Vomiting [None]
  - Diarrhoea [None]
  - Rash papular [None]
  - Ocular icterus [None]
  - Hepatic enzyme increased [None]
  - Ammonia increased [None]
  - Hepatic steatosis [None]
  - Hepatomegaly [None]

NARRATIVE: CASE EVENT DATE: 20220830
